FAERS Safety Report 4306119-8 (Version None)
Quarter: 2004Q1

REPORT INFORMATION
  Report Type: 
  Country: None (occurrence: None)
  Receive Date: 20040225
  Receipt Date: 20030218
  Transmission Date: 20041129
  Serious: No
  Sender: FDA-Public Use
  Company Number: US-BRISTOL-MYERS SQUIBB COMPANY-12188611

PATIENT
  Sex: Female
  Weight: 57 kg

DRUGS (3)
  1. EXCEDRIN ES TABS [Suspect]
     Indication: PAIN
     Dosage: DOSE VALUE: 2 TO 4 DOSAGE FORM ALMOST DAILY
     Route: 048
  2. ADVIL [Concomitant]
  3. MULTIVITAMIN [Concomitant]

REACTIONS (1)
  - DRUG EXPOSURE DURING PREGNANCY [None]
